FAERS Safety Report 4435389-0 (Version None)
Quarter: 2004Q3

REPORT INFORMATION
  Report Type: 
  Country: None (occurrence: None)
  Receive Date: 20040826
  Receipt Date: 20040810
  Transmission Date: 20050211
  Serious: Yes (Hospitalization)
  Sender: FDA-Public Use
  Company Number: 198535

PATIENT
  Age: 46 Year
  Sex: Male
  Weight: 158.759 kg

DRUGS (7)
  1. AVONEX [Suspect]
     Indication: MULTIPLE SCLEROSIS
     Dosage: 30 MCG QW IM
     Dates: start: 19970101, end: 20030801
  2. AVONEX [Suspect]
     Indication: MULTIPLE SCLEROSIS
     Dosage: 30 MCG QW IM
     Dates: start: 20030801, end: 20040524
  3. ZANAFLEX [Concomitant]
  4. BACLOFEN [Concomitant]
  5. CARDURA [Concomitant]
  6. PAXIL [Concomitant]
  7. NEURONTIN [Concomitant]

REACTIONS (32)
  - BALANCE DISORDER [None]
  - BEDRIDDEN [None]
  - CONDITION AGGRAVATED [None]
  - CONSTIPATION [None]
  - CYSTITIS [None]
  - FAECAL INCONTINENCE [None]
  - FALL [None]
  - GASTRIC ULCER HAEMORRHAGE [None]
  - GASTROINTESTINAL DISORDER [None]
  - GASTROINTESTINAL HAEMORRHAGE [None]
  - GENERAL PHYSICAL HEALTH DETERIORATION [None]
  - HAEMATEMESIS [None]
  - HAEMATURIA [None]
  - HAEMORRHAGE [None]
  - HAEMORRHOIDS [None]
  - HYPOTENSION [None]
  - INSOMNIA [None]
  - INTESTINAL OBSTRUCTION [None]
  - MULTIPLE SCLEROSIS [None]
  - MUSCLE ATROPHY [None]
  - NEOPLASM SKIN [None]
  - PERIPHERAL NERVE INJURY [None]
  - PNEUMONIA ASPIRATION [None]
  - POOR VENOUS ACCESS [None]
  - PULMONARY EMBOLISM [None]
  - PULMONARY HAEMORRHAGE [None]
  - PULMONARY THROMBOSIS [None]
  - RECTAL HAEMORRHAGE [None]
  - SKIN LACERATION [None]
  - SLEEP DISORDER [None]
  - SPINAL HAEMATOMA [None]
  - URINARY INCONTINENCE [None]
